FAERS Safety Report 5423603-4 (Version None)
Quarter: 2007Q3

REPORT INFORMATION
  Report Type: 
  Country: None (occurrence: None)
  Receive Date: 20070727
  Receipt Date: 20070619
  Transmission Date: 20080115
  Serious: No
  Sender: FDA-Public Use
  Company Number: 264652

PATIENT
  Age: 69 Year
  Sex: Female

DRUGS (4)
  1. LEVEMIR [Suspect]
     Indication: INSULIN-REQUIRING TYPE II DIABETES MELLITUS
     Dosage: 30 IU, QD, SUBCUTANEOUS, 40 IU, QD, SUBCUTANEOUS
     Route: 058
     Dates: start: 20070607, end: 20070601
  2. LEVEMIR [Suspect]
     Indication: INSULIN-REQUIRING TYPE II DIABETES MELLITUS
     Dosage: 30 IU, QD, SUBCUTANEOUS, 40 IU, QD, SUBCUTANEOUS
     Route: 058
     Dates: start: 20070601
  3. NOVOLOG FLEXPEN (INSULIN ASPART) [Concomitant]
  4. NOVOFINE 31 (NEEDLE) [Concomitant]

REACTIONS (2)
  - INJECTION SITE BRUISING [None]
  - INJECTION SITE PAIN [None]
